FAERS Safety Report 10052884 (Version 1)
Quarter: 2014Q1

REPORT INFORMATION
  Report Type: Spontaneous
  Country: JP (occurrence: None)
  Receive Date: 20140331
  Receipt Date: 20140331
  Transmission Date: 20141002
  Serious: Yes (Death)
  Sender: FDA-Public Use
  Company Number: 2014P1002461

PATIENT
  Sex: 0

DRUGS (1)
  1. IRINOTECAN [Suspect]
     Indication: GASTRIC CANCER
     Route: 042

REACTIONS (1)
  - Pneumonia [None]
